FAERS Safety Report 4841750-2 (Version None)
Quarter: 2005Q4

REPORT INFORMATION
  Report Type: 
  Country: None (occurrence: None)
  Receive Date: 20051027
  Receipt Date: 20040908
  Transmission Date: 20060501
  Serious: Yes (Other)
  Sender: FDA-Public Use
  Company Number: HQWYE924608SEP04

PATIENT
  Age: 45 Year
  Sex: Female

DRUGS (1)
  1. PREMARIN [Suspect]
     Dosage: 1.25 MG, REGIMEN NOT
     Dates: start: 19980101

REACTIONS (2)
  - GALLBLADDER DISORDER [None]
  - LIVER DISORDER [None]
